FAERS Safety Report 19123795 (Version 1)
Quarter: 2021Q2

REPORT INFORMATION
  Report Type: Report from Study
  Country: CA (occurrence: CA)
  Receive Date: 20210412
  Receipt Date: 20210412
  Transmission Date: 20210717
  Serious: Yes (Other)
  Sender: FDA-Public Use
  Company Number: PHHY2014CA127333

PATIENT
  Age: 67 Year
  Sex: Male

DRUGS (3)
  1. SANDOSTATIN LAR DEPOT [Suspect]
     Active Substance: OCTREOTIDE ACETATE
     Indication: PANCREATIC NEUROENDOCRINE TUMOUR
     Dosage: 30 MG, QMO (EVERY 4 WEEKS)
     Route: 030
     Dates: start: 20140528
  2. SANDOSTATIN LAR DEPOT [Suspect]
     Active Substance: OCTREOTIDE ACETATE
  3. SANDOSTATIN LAR DEPOT [Suspect]
     Active Substance: OCTREOTIDE ACETATE

REACTIONS (14)
  - Diabetes mellitus [Unknown]
  - Haemorrhoids [Unknown]
  - Malignant neoplasm progression [Unknown]
  - Body temperature decreased [Unknown]
  - Skin lesion [Unknown]
  - Blood pressure diastolic decreased [Unknown]
  - Respiratory rate increased [Unknown]
  - Blood pressure systolic increased [Unknown]
  - Scab [Unknown]
  - Discomfort [Unknown]
  - Blood glucose increased [Unknown]
  - Heart rate decreased [Unknown]
  - Pancreatic neuroendocrine tumour [Unknown]
  - Anal fissure [Unknown]

NARRATIVE: CASE EVENT DATE: 20140924
